FAERS Safety Report 6203581-0 (Version None)
Quarter: 2009Q2

REPORT INFORMATION
  Report Type: 
  Country: None (occurrence: None)
  Receive Date: 20090521
  Receipt Date: 20090406
  Transmission Date: 20091009
  Serious: Yes (Hospitalization)
  Sender: FDA-Public Use
  Company Number: 000743

PATIENT
  Sex: Female

DRUGS (13)
  1. NEUPRO [Suspect]
     Indication: PARKINSON'S DISEASE
     Dosage: (2 MG QD TRANSDERMAL)
     Route: 062
     Dates: start: 20090331, end: 20090408
  2. TAZOCIN (TAZOCIN) [Suspect]
     Indication: SEPSIS
     Dosage: (4.5 MG TID INTRAVENOUS (NOT OTHERWISE SPECIFIED))
     Route: 042
     Dates: start: 20090330, end: 20090331
  3. ASPIRIN [Concomitant]
  4. CARBAMAZEPINE [Concomitant]
  5. DOMPERIDONE [Concomitant]
  6. LANSOPRAZOLE [Concomitant]
  7. LETROZOLE [Concomitant]
  8. MADOPAR /00349201/ [Concomitant]
  9. METRONIDAZOLE [Concomitant]
  10. MIRTAZAPINE [Concomitant]
  11. PARACETAMOL [Concomitant]
  12. SINEMET [Concomitant]
  13. CALOGEN /01646802/ [Concomitant]

REACTIONS (5)
  - BLOOD ALBUMIN DECREASED [None]
  - LIP SWELLING [None]
  - OEDEMA PERIPHERAL [None]
  - SWELLING FACE [None]
  - SWOLLEN TONGUE [None]
